FAERS Safety Report 5412037-4 (Version None)
Quarter: 2007Q3

REPORT INFORMATION
  Report Type: 
  Country: None (occurrence: None)
  Receive Date: 20070809
  Receipt Date: 20070731
  Transmission Date: 20080115
  Serious: Yes (Hospitalization)
  Sender: FDA-Public Use
  Company Number: 2007BI014791

PATIENT
  Age: 41 Year
  Sex: Female

DRUGS (1)
  1. AVONEX [Suspect]
     Indication: MULTIPLE SCLEROSIS
     Dosage: 30 UG;QW;IM
     Route: 030
     Dates: start: 20070413

REACTIONS (6)
  - CHEST PAIN [None]
  - CONVULSION [None]
  - DISEASE RECURRENCE [None]
  - MUSCULOSKELETAL DISORDER [None]
  - OPTIC NEURITIS [None]
  - TREMOR [None]
